FAERS Safety Report 5755518-6 (Version None)
Quarter: 2008Q2

REPORT INFORMATION
  Report Type: 
  Country: None (occurrence: None)
  Receive Date: 20080528
  Receipt Date: 20080515
  Transmission Date: 20081010
  Serious: Yes (Other)
  Sender: FDA-Public Use
  Company Number: 100#01#2008-02009

PATIENT
  Age: 66 Year
  Sex: Male

DRUGS (7)
  1. TRAMADOL (50 MILLIGRAM, CAPSULES) (TRAMADOL) [Suspect]
     Indication: DRUG USE FOR UNKNOWN INDICATION
  2. LANSOPRAZOLE [Suspect]
     Indication: DRUG USE FOR UNKNOWN INDICATION
     Dosage: 30 MG/DAY
  3. TOLTERODINE TARTRATE [Concomitant]
  4. FOLIC ACID [Concomitant]
  5. HYOSCINE HBR HYT [Concomitant]
  6. FORTICHEW (SUBSTANCE UNKNOWN) [Concomitant]
  7. CALCICHEW (CALCIUM CARBONATE) [Concomitant]

REACTIONS (2)
  - BLOOD ALKALINE PHOSPHATASE INCREASED [None]
  - INTERNATIONAL NORMALISED RATIO INCREASED [None]
